FAERS Safety Report 13607801 (Version 2)
Quarter: 2017Q2

REPORT INFORMATION
  Report Type: Spontaneous
  Country: US (occurrence: US)
  Receive Date: 20170602
  Receipt Date: 20170609
  Transmission Date: 20170830
  Serious: Yes (Death, Hospitalization)
  Sender: FDA-Public Use
  Company Number: US-UNITED THERAPEUTICS-UNT-2017-008052

PATIENT
  Age: 67 Year
  Sex: Female
  Weight: 75.28 kg

DRUGS (2)
  1. OPSUMIT [Concomitant]
     Active Substance: MACITENTAN
     Indication: PRODUCT USED FOR UNKNOWN INDICATION
  2. REMODULIN [Suspect]
     Active Substance: TREPROSTINIL
     Indication: PULMONARY ARTERIAL HYPERTENSION
     Dosage: 0.01125 ?G/KG, CONTINUING
     Route: 058
     Dates: start: 20170511

REACTIONS (3)
  - Dyspnoea [Unknown]
  - Cardiac failure [Fatal]
  - Hypoxia [Unknown]

NARRATIVE: CASE EVENT DATE: 20170528
